FAERS Safety Report 4453250-2 (Version None)
Quarter: 2004Q3

REPORT INFORMATION
  Report Type: 
  Country: None (occurrence: None)
  Receive Date: 20040902
  Receipt Date: 20040510
  Transmission Date: 20050211
  Serious: No
  Sender: FDA-Public Use
  Company Number: 200417832BWH

PATIENT
  Age: 66 Year
  Sex: Male
  Weight: 104.3273 kg

DRUGS (4)
  1. LEVITRA [Suspect]
     Indication: ERECTILE DYSFUNCTION
     Dosage: 10 MG, ONCE, ORAL
     Route: 048
     Dates: start: 20040509
  2. AVALIDE [Concomitant]
  3. BACLOFEN [Concomitant]
  4. KLONOPIN [Concomitant]

REACTIONS (3)
  - BURNING SENSATION [None]
  - MUSCLE CRAMP [None]
  - SKIN BURNING SENSATION [None]
